FAERS Safety Report 18257755 (Version 3)
Quarter: 2025Q3

REPORT INFORMATION
  Report Type: Spontaneous
  Country: US (occurrence: US)
  Receive Date: 20200911
  Receipt Date: 20250913
  Transmission Date: 20251021
  Serious: Yes (Life-Threatening, Hospitalization, Other)
  Sender: AUROBINDO
  Company Number: US-MLMSERVICE-20200824-2449075-1

PATIENT
  Age: 42 Year
  Sex: Female

DRUGS (5)
  1. HYDROXYCHLOROQUINE [Suspect]
     Active Substance: HYDROXYCHLOROQUINE
     Indication: Juvenile idiopathic arthritis
     Dosage: 200 MILLIGRAM, TWO TIMES A DAY
     Route: 065
  2. HYDROXYCHLOROQUINE [Suspect]
     Active Substance: HYDROXYCHLOROQUINE
     Route: 065
  3. HYDROCORTISONE [Suspect]
     Active Substance: HYDROCORTISONE
     Indication: Juvenile idiopathic arthritis
     Dosage: 20 MILLIGRAM, ONCE A DAY(IN THE MORNING)
     Route: 065
  4. HYDROCORTISONE [Suspect]
     Active Substance: HYDROCORTISONE
     Dosage: 10 MILLIGRAM, ONCE A DAY(IN THE AFTERNOON)
     Route: 065
  5. ANAKINRA [Suspect]
     Active Substance: ANAKINRA
     Indication: Juvenile idiopathic arthritis
     Dosage: 100 MILLIGRAM, ONCE A DAY
     Route: 058

REACTIONS (18)
  - Encephalopathy [Recovered/Resolved]
  - Respiratory acidosis [Recovered/Resolved]
  - Diaphragm muscle weakness [Recovered/Resolved]
  - Respiratory failure [Recovered/Resolved]
  - Pneumothorax [Recovered/Resolved]
  - Hypercapnia [Recovered/Resolved]
  - Encephalomalacia [Recovered/Resolved]
  - Myopathy [Recovered/Resolved]
  - Muscle injury [Recovered/Resolved]
  - Toxicity to various agents [Recovered/Resolved]
  - Acute respiratory failure [Recovering/Resolving]
  - Myopathy toxic [Recovering/Resolving]
  - Embolic stroke [Recovered/Resolved]
  - Tibia fracture [Recovered/Resolved]
  - Subarachnoid haemorrhage [Recovered/Resolved]
  - Fall [Recovered/Resolved]
  - Cervical vertebral fracture [Recovered/Resolved]
  - Off label use [Unknown]
